FAERS Safety Report 8350509-3 (Version None)
Quarter: 2012Q2

REPORT INFORMATION
  Report Type: 
  Country: None (occurrence: None)
  Receive Date: 20120510
  Receipt Date: 20120501
  Transmission Date: 20120825
  Serious: Yes (Hospitalization)
  Sender: FDA-Public Use
  Company Number: US-BAYER-2012-043654

PATIENT
  Age: 50 Year
  Sex: Female

DRUGS (6)
  1. SYNTHROID [Concomitant]
     Dosage: 100 MG, UNK
     Route: 048
  2. TRICOR [Concomitant]
     Dosage: 400 MG, UNK
     Route: 048
  3. YAZ [Suspect]
  4. YASMIN [Suspect]
     Indication: CONTRACEPTION
  5. DROSPIRENONE AND ETHINYL ESTRADIOL [Suspect]
  6. LEVOTHYROXINE SODIUM [Concomitant]

REACTIONS (1)
  - HAEMORRHAGIC TRANSFORMATION STROKE [None]
